FAERS Safety Report 14017185 (Version 2)
Quarter: 2017Q4

REPORT INFORMATION
  Report Type: Spontaneous
  Country: JP (occurrence: JP)
  Receive Date: 20170927
  Receipt Date: 20171004
  Transmission Date: 20180321
  Serious: Yes (Hospitalization, Other)
  Sender: FDA-Public Use
  Company Number: JP-PFIZER INC-2017413913

PATIENT
  Age: 8 Decade
  Sex: Female

DRUGS (8)
  1. AMLODIPINE /00972402/ [Concomitant]
     Active Substance: AMLODIPINE BESYLATE
     Dosage: 5 MG, 1X/DAY
     Route: 048
  2. CELECOX [Suspect]
     Active Substance: CELECOXIB
     Dosage: 200 MG, 1X/DAY
     Route: 048
     Dates: start: 20170905
  3. OLMETEC [Concomitant]
     Active Substance: OLMESARTAN MEDOXOMIL
     Dosage: 20 MG, 1X/DAY
     Route: 048
  4. ARTIST [Concomitant]
     Active Substance: CARVEDILOL
     Dosage: 20 MG, 1X/DAY
     Route: 048
  5. LENDORMIN [Concomitant]
     Active Substance: BROTIZOLAM
     Dosage: UNK
     Route: 048
  6. DEPAS [Concomitant]
     Active Substance: ETIZOLAM
     Dosage: 3 MG, 1X/DAY
     Route: 048
  7. GASTER [Suspect]
     Active Substance: FAMOTIDINE
     Indication: CHRONIC GASTRITIS
     Dosage: 20 MG, 1X/DAY
     Route: 048
  8. LEXAPRO [Concomitant]
     Active Substance: ESCITALOPRAM OXALATE
     Dosage: 10 MG, 1X/DAY
     Route: 048

REACTIONS (4)
  - Pyrexia [Unknown]
  - Stevens-Johnson syndrome [Recovered/Resolved]
  - Mucous membrane disorder [Unknown]
  - Eye disorder [Unknown]

NARRATIVE: CASE EVENT DATE: 2017
